FAERS Safety Report 5387329-8 (Version None)
Quarter: 2007Q3

REPORT INFORMATION
  Report Type: 
  Country: None (occurrence: None)
  Receive Date: 20070716
  Receipt Date: 20070712
  Transmission Date: 20080115
  Serious: Yes (Death)
  Sender: FDA-Public Use
  Company Number: PHBS2007GR11821

PATIENT
  Age: 7 Year
  Sex: Female

DRUGS (9)
  1. PREZOLON [Suspect]
  2. METHYLPREDNISOLONE [Suspect]
  3. KINERET [Suspect]
     Indication: VASCULITIS
     Route: 065
     Dates: start: 20070414
  4. CORTICOSTEROIDS [Suspect]
  5. METHOTREXATE [Suspect]
  6. CYCLOPHOSPHAMIDE [Suspect]
  7. ETANERCEPT [Suspect]
  8. AZATHIOPRINE [Suspect]
  9. SANDIMMUNE [Suspect]
     Indication: VASCULITIS
     Route: 065

REACTIONS (3)
  - HISTIOCYTOSIS HAEMATOPHAGIC [None]
  - IMMUNOSUPPRESSION [None]
  - PARVOVIRUS INFECTION [None]
